FAERS Safety Report 6605251-3 (Version None)
Quarter: 2010Q1

REPORT INFORMATION
  Report Type: 
  Country: None (occurrence: None)
  Receive Date: 20100226
  Receipt Date: 20100218
  Transmission Date: 20100710
  Serious: Yes (Other)
  Sender: FDA-Public Use
  Company Number: DE-ELI_LILLY_AND_COMPANY-DE201002006148

PATIENT
  Sex: Male

DRUGS (1)
  1. ALIMTA [Suspect]
     Indication: NON-SMALL CELL LUNG CANCER STAGE II
     Dosage: UNK, UNKNOWN
     Route: 042

REACTIONS (2)
  - BLINDNESS [None]
  - OPTIC NEURITIS [None]
